FAERS Safety Report 15869904 (Version 1)
Quarter: 2019Q1

REPORT INFORMATION
  Report Type: Other
  Country: US (occurrence: US)
  Receive Date: 20190125
  Receipt Date: 20190125
  Transmission Date: 20190417
  Serious: No
  Sender: FDA-Public Use
  Company Number: US-ACORDA-ACO_150612_2018

PATIENT
  Sex: Female

DRUGS (3)
  1. AMPYRA [Suspect]
     Active Substance: DALFAMPRIDINE
     Indication: HYPERTONIC BLADDER
     Dosage: 10 MG, Q 12 HRS
     Route: 048
     Dates: start: 20160906, end: 20180515
  2. AMPYRA [Suspect]
     Active Substance: DALFAMPRIDINE
     Indication: MULTIPLE SCLEROSIS
  3. AMPYRA [Suspect]
     Active Substance: DALFAMPRIDINE
     Indication: MICTURITION URGENCY

REACTIONS (3)
  - Adverse event [Unknown]
  - Pregnancy [Unknown]
  - Off label use [Unknown]
